FAERS Safety Report 18303305 (Version 1)
Quarter: 2020Q3

REPORT INFORMATION
  Report Type: Spontaneous
  Country: SI (occurrence: SI)
  Receive Date: 20200923
  Receipt Date: 20200923
  Transmission Date: 20201103
  Serious: Yes (Disabling)
  Sender: FDA-Public Use
  Company Number: SI-TEVA-2020-SI-1829620

PATIENT
  Sex: Female

DRUGS (3)
  1. FLUDARABINE [Suspect]
     Active Substance: FLUDARABINE PHOSPHATE
     Indication: ACUTE MYELOID LEUKAEMIA
     Dosage: AS A PART OF FLAG?IDA CHEMOTHERAPY REGIMEN
     Route: 065
  2. CYTARABINE. [Suspect]
     Active Substance: CYTARABINE
     Indication: ACUTE MYELOID LEUKAEMIA
     Dosage: AS A PART OF FLAG?IDA CHEMOTHERAPY REGIMEN
     Route: 065
  3. IDARUBICIN [Suspect]
     Active Substance: IDARUBICIN
     Indication: ACUTE MYELOID LEUKAEMIA
     Dosage: AS FLAG?IDA CHEMOTHERAPY REGIMEN
     Route: 065

REACTIONS (2)
  - Premature menopause [Not Recovered/Not Resolved]
  - Infertility female [Not Recovered/Not Resolved]
